FAERS Safety Report 22122310 (Version 1)
Quarter: 2023Q1

REPORT INFORMATION
  Report Type: Report from Study
  Country: CO (occurrence: CO)
  Receive Date: 20230321
  Receipt Date: 20230321
  Transmission Date: 20230418
  Serious: Yes (Hospitalization, Other)
  Sender: FDA-Public Use
  Company Number: CO-ABBVIE-4697056

PATIENT
  Sex: Female

DRUGS (1)
  1. ZEMPLAR [Suspect]
     Active Substance: PARICALCITOL
     Indication: Hyperparathyroidism
     Route: 042
     Dates: start: 20190510, end: 20221010

REACTIONS (6)
  - Device malfunction [Not Recovered/Not Resolved]
  - Blood phosphorus abnormal [Not Recovered/Not Resolved]
  - Abdominal pain upper [Not Recovered/Not Resolved]
  - Blood potassium abnormal [Not Recovered/Not Resolved]
  - Malaise [Not Recovered/Not Resolved]
  - Device related infection [Not Recovered/Not Resolved]

NARRATIVE: CASE EVENT DATE: 20230101
